FAERS Safety Report 10596731 (Version 5)
Quarter: 2015Q3

REPORT INFORMATION
  Report Type: Spontaneous
  Country: BR (occurrence: BR)
  Receive Date: 20141120
  Receipt Date: 20150923
  Transmission Date: 20151125
  Serious: Yes (Other)
  Sender: FDA-Public Use
  Company Number: BR-SA-2014SA011127

PATIENT
  Sex: Female
  Weight: 65 kg

DRUGS (26)
  1. LANTUS [Suspect]
     Active Substance: INSULIN GLARGINE
     Indication: TYPE 1 DIABETES MELLITUS
     Dosage: STRENGTH: 3 ML CARTRIDGE
     Route: 058
     Dates: start: 201311
  2. ALL OTHER THERAPEUTIC PRODUCTS [Concomitant]
     Active Substance: UNSPECIFIED INGREDIENT
     Indication: HEPATIC CIRRHOSIS
     Dates: start: 201311
  3. TREZOR [Concomitant]
     Active Substance: ROSUVASTATIN CALCIUM
     Indication: BLOOD CHOLESTEROL
     Route: 048
  4. GABAPENTIN. [Concomitant]
     Active Substance: GABAPENTIN
     Indication: DIABETIC NEUROPATHY
     Dates: start: 201403
  5. AMLODIPINE [Concomitant]
     Active Substance: AMLODIPINE BESYLATE
     Indication: BLOOD PRESSURE MEASUREMENT
     Dates: start: 201312
  6. HYDROCHLOROTHIAZIDE. [Concomitant]
     Active Substance: HYDROCHLOROTHIAZIDE
     Indication: HYPERTENSION
     Dosage: 1 TIME IN MORNING
     Route: 048
  7. CLIKSTAR [Concomitant]
     Active Substance: CLIKSTAR
     Indication: DEVICE THERAPY
  8. MOTILIUM [Concomitant]
     Active Substance: DOMPERIDONE
     Indication: ABDOMINAL PAIN
     Route: 048
     Dates: start: 201311
  9. BROMAZEPAM [Concomitant]
     Active Substance: BROMAZEPAM
     Indication: INSOMNIA
     Dates: start: 201312
  10. VASTAREL [Concomitant]
     Active Substance: TRIMETAZIDINE DIHYDROCHLORIDE
     Indication: CARDIAC DISORDER
     Dosage: 5-6 YEARS AGO
     Route: 048
  11. MOTILIUM [Concomitant]
     Active Substance: DOMPERIDONE
     Indication: HEPATIC CIRRHOSIS
     Route: 048
     Dates: start: 201311
  12. PURAN [Concomitant]
     Active Substance: LEVOTHYROXINE SODIUM
     Indication: HYPOTHYROIDISM
     Dosage: ONCE ON FASTING
     Route: 048
     Dates: start: 201307
  13. NOVORAPID [Concomitant]
     Active Substance: INSULIN ASPART
  14. OMEPRAZOLE. [Concomitant]
     Active Substance: OMEPRAZOLE
     Indication: GASTRIC DISORDER
     Dates: start: 201402
  15. LOSARTAN. [Concomitant]
     Active Substance: LOSARTAN
     Indication: BLOOD PRESSURE MEASUREMENT
     Route: 048
     Dates: start: 201312
  16. SUSTRATE [Concomitant]
     Active Substance: PROPATYL NITRATE
     Indication: HYPERTENSION
     Route: 048
     Dates: start: 201312
  17. RANITIDINE [Concomitant]
     Active Substance: RANITIDINE\RANITIDINE HYDROCHLORIDE
     Indication: PROPHYLAXIS
     Route: 048
     Dates: start: 2010
  18. LANTUS [Suspect]
     Active Substance: INSULIN GLARGINE
     Indication: TYPE 1 DIABETES MELLITUS
     Dosage: DOSE:34 UNIT(S)
     Route: 058
     Dates: start: 2012
  19. CONCOR [Concomitant]
     Active Substance: BISOPROLOL FUMARATE
     Indication: CARDIAC DISORDER
     Dates: start: 201403
  20. DIAMICRON [Concomitant]
     Active Substance: GLICLAZIDE
     Indication: DIABETES MELLITUS
     Dates: start: 201402
  21. CRESTOR [Concomitant]
     Active Substance: ROSUVASTATIN CALCIUM
     Indication: BLOOD CHOLESTEROL
     Dates: start: 201312
  22. LOSARTAN. [Concomitant]
     Active Substance: LOSARTAN
     Indication: HYPERTENSION
     Route: 048
     Dates: start: 201312
  23. SUSTRATE [Concomitant]
     Active Substance: PROPATYL NITRATE
     Indication: BLOOD PRESSURE MEASUREMENT
     Route: 048
     Dates: start: 201312
  24. PURAN [Concomitant]
     Active Substance: LEVOTHYROXINE SODIUM
     Indication: THYROID DISORDER
     Dosage: ONCE ON FASTING
     Route: 048
     Dates: start: 201307
  25. HUMALOG [Concomitant]
     Active Substance: INSULIN LISPRO
     Indication: DIABETES MELLITUS
     Dosage: ROUTE: ARM, LEG?DOSE: 3, 8 AND 6UNITS
     Route: 048
  26. CALTREN [Concomitant]
     Active Substance: NITRENDIPINE
     Indication: CARDIAC DISORDER
     Route: 048

REACTIONS (20)
  - Dizziness [Recovered/Resolved]
  - Pain [Recovering/Resolving]
  - Pancreatic disorder [Unknown]
  - Hypoglycaemia [Recovered/Resolved]
  - Injection site induration [Unknown]
  - Disorientation [Recovered/Resolved]
  - Erythema [Recovered/Resolved]
  - Glycosylated haemoglobin increased [Unknown]
  - Malnutrition [Unknown]
  - Balance disorder [Recovered/Resolved]
  - Swelling [Recovered/Resolved]
  - Weight increased [Not Recovered/Not Resolved]
  - Asthenopia [Recovered/Resolved]
  - Injection site haematoma [Recovered/Resolved]
  - Malaise [Recovered/Resolved]
  - Tremor [Recovered/Resolved]
  - Dyspnoea [Recovered/Resolved]
  - Injection site haemorrhage [Recovered/Resolved]
  - Injection site pain [Not Recovered/Not Resolved]
  - Hypersensitivity [Recovered/Resolved]

NARRATIVE: CASE EVENT DATE: 2014
